FAERS Safety Report 9081724 (Version 1)
Quarter: 2013Q1

REPORT INFORMATION
  Report Type: Report from Study
  Country: US (occurrence: US)
  Receive Date: 20130130
  Receipt Date: 20130130
  Transmission Date: 20140127
  Serious: No
  Sender: FDA-Public Use
  Company Number: US-ABBOTT-12P-163-0971211-00

PATIENT
  Age: 62 Year
  Sex: Male
  Weight: 77.18 kg

DRUGS (9)
  1. HUMIRA [Suspect]
     Route: 058
     Dates: start: 20120817, end: 20120817
  2. BALSALAZIDE DISODIUM [Concomitant]
     Indication: CROHN^S DISEASE
  3. OMEPRAZOLE [Concomitant]
     Indication: CROHN^S DISEASE
  4. PERCOCET [Concomitant]
     Indication: ABDOMINAL DISCOMFORT
  5. PERCOCET [Concomitant]
     Indication: PAIN
  6. PREDNISONE [Concomitant]
     Indication: CROHN^S DISEASE
  7. AZATHIOPRINE [Concomitant]
     Indication: CROHN^S DISEASE
  8. PAXIL [Concomitant]
     Indication: FEELING OF RELAXATION
  9. PAXIL [Concomitant]
     Indication: GASTRIC DISORDER

REACTIONS (3)
  - Asthenia [Recovered/Resolved]
  - Fatigue [Recovered/Resolved]
  - Injection site pain [Recovered/Resolved]
